FAERS Safety Report 7276092-1 (Version None)
Quarter: 2011Q1

REPORT INFORMATION
  Report Type: 
  Country: None (occurrence: None)
  Receive Date: 20110204
  Receipt Date: 20110124
  Transmission Date: 20110831
  Serious: Yes (Other)
  Sender: FDA-Public Use
  Company Number: DK-WATSON-2011-01291

PATIENT
  Age: 33 Year
  Sex: Female

DRUGS (3)
  1. ACETAMINOPHEN [Suspect]
     Indication: HEADACHE
     Dosage: 1 G, QID
  2. TRAMADOL HCL [Suspect]
     Indication: HEADACHE
     Dosage: 100 MG, QID
  3. MORPHINE SULFATE [Suspect]
     Indication: HEADACHE
     Dosage: 10 MG, TID

REACTIONS (2)
  - HEADACHE [None]
  - DEVICE MALFUNCTION [None]
